FAERS Safety Report 6396183-7 (Version None)
Quarter: 2009Q4

REPORT INFORMATION
  Report Type: 
  Country: None (occurrence: None)
  Receive Date: 20091010
  Receipt Date: 20091007
  Transmission Date: 20100525
  Serious: Yes (Other)
  Sender: FDA-Public Use
  Company Number: BR-JNJCH-2009025987

PATIENT
  Sex: Female
  Weight: 68 kg

DRUGS (1)
  1. COOL MINT LISTERINE [Suspect]
     Indication: DENTAL DISORDER PROPHYLAXIS
     Dosage: TEXT:UNKNOWN
     Route: 048
     Dates: start: 20090924, end: 20090925

REACTIONS (2)
  - MOUTH ULCERATION [None]
  - ORAL DISCOMFORT [None]
